FAERS Safety Report 8069643 (Version 4)
Quarter: 2014Q4

REPORT INFORMATION
  Report Type: Spontaneous
  Country: FR (occurrence: FR)
  Receive Date: 20110804
  Receipt Date: 20141029
  Transmission Date: 20150529
  Serious: Yes (Hospitalization, Other)
  Sender: FDA-Public Use
  Company Number: FR-JNJFOC-20110800514

PATIENT
  Age: 0 Day
  Sex: Female
  Weight: 2.18 kg

DRUGS (9)
  1. OROKEN [Suspect]
     Active Substance: CEFIXIME
     Indication: ESCHERICHIA INFECTION
     Dosage: AT WEEK 34.
     Route: 065
  2. FLAGYL [Suspect]
     Active Substance: METRONIDAZOLE\METRONIDAZOLE HYDROCHLORIDE
     Indication: ESCHERICHIA INFECTION
     Dosage: AT WEEK 34
     Route: 065
  3. REMICADE [Suspect]
     Active Substance: INFLIXIMAB
     Indication: COLITIS ULCERATIVE
     Route: 064
  4. CLOMID [Suspect]
     Active Substance: CLOMIPHENE CITRATE
     Indication: PRODUCT USED FOR UNKNOWN INDICATION
     Route: 065
  5. CLOMIPHENE [Suspect]
     Active Substance: CLOMIPHENE
     Indication: OVULATION INDUCTION
     Route: 064
  6. POLARAMIN [Suspect]
     Active Substance: DEXCHLORPHENIRAMINE MALEATE
     Indication: PRURITUS
     Dosage: FROM WEEK 32 TO WEEK 34.5 OF AMENORRHEA
     Route: 065
  7. REMICADE [Suspect]
     Active Substance: INFLIXIMAB
     Indication: COLITIS ULCERATIVE
     Route: 064
     Dates: end: 20110404
  8. ATARAX [Suspect]
     Active Substance: HYDROXYZINE\HYDROXYZINE HYDROCHLORIDE
     Indication: PRURITUS
     Dosage: FROM WEEK 32  TO WEEK 34.5 OF AMENORRHEA
     Route: 065
  9. TRACTOCILE (ATOSIBAN) [Suspect]
     Active Substance: ATOSIBAN
     Indication: THREATENED LABOUR
     Dosage: AT WEEK 33 OF AMENORRHEA
     Route: 065

REACTIONS (7)
  - Premature baby [Recovered/Resolved]
  - Foetal exposure during pregnancy [Recovered/Resolved]
  - Bacterial diarrhoea [Recovered/Resolved]
  - Neutropenia neonatal [Recovered/Resolved]
  - Neonatal respiratory distress syndrome [Recovered/Resolved]
  - Omphalitis [Unknown]
  - Enterobacter infection [Not Recovered/Not Resolved]

NARRATIVE: CASE EVENT DATE: 201107
